FAERS Safety Report 19199421 (Version 1)
Quarter: 2021Q2

REPORT INFORMATION
  Report Type: Report from Study
  Country: GB (occurrence: GB)
  Receive Date: 20210430
  Receipt Date: 20210430
  Transmission Date: 20210717
  Serious: Yes (Other)
  Sender: FDA-Public Use
  Company Number: GB-TEVA-2021-GB-1905150

PATIENT
  Age: 43 Year
  Sex: Female

DRUGS (1)
  1. OLATUTON [Suspect]
     Active Substance: OCTREOTIDE
     Indication: POSTPRANDIAL HYPOGLYCAEMIA
     Route: 065

REACTIONS (4)
  - Blood glucose decreased [Recovering/Resolving]
  - Cystitis [Recovering/Resolving]
  - Renal pain [Recovering/Resolving]
  - Abdominal pain [Recovering/Resolving]

NARRATIVE: CASE EVENT DATE: 2021
